FAERS Safety Report 17638138 (Version 3)
Quarter: 2020Q3

REPORT INFORMATION
  Report Type: Report from Study
  Country: PT (occurrence: PT)
  Receive Date: 20200407
  Receipt Date: 20200708
  Transmission Date: 20201104
  Serious: Yes (Other)
  Sender: FDA-Public Use
  Company Number: NVSC2020PT090476

PATIENT
  Age: 48 Year
  Sex: Female
  Weight: 71 kg

DRUGS (6)
  1. BYL719 [Suspect]
     Active Substance: ALPELISIB
     Dosage: 250 MG, QD
     Route: 048
     Dates: start: 20200303
  2. BYL719 [Suspect]
     Active Substance: ALPELISIB
     Dosage: 200 MG
     Route: 048
     Dates: start: 20200414
  3. BYL719 [Suspect]
     Active Substance: ALPELISIB
     Indication: BREAST CANCER METASTATIC
     Dosage: 300 MG, QD
     Route: 048
     Dates: start: 20200218, end: 20200302
  4. BYL719 [Suspect]
     Active Substance: ALPELISIB
     Dosage: 200 MG
     Route: 048
     Dates: start: 20200317
  5. BYL719 [Suspect]
     Active Substance: ALPELISIB
     Dosage: 50 MG
     Route: 048
  6. FULVESTRANT. [Suspect]
     Active Substance: FULVESTRANT
     Indication: PRODUCT USED FOR UNKNOWN INDICATION
     Dosage: UNK
     Route: 030
     Dates: start: 20200218

REACTIONS (4)
  - Stomatitis [Unknown]
  - Hyperglycaemia [Recovered/Resolved]
  - Mucosal inflammation [Recovered/Resolved]
  - Oral pain [Unknown]

NARRATIVE: CASE EVENT DATE: 20200225
